FAERS Safety Report 10884017 (Version 1)
Quarter: 2015Q1

REPORT INFORMATION
  Report Type: Spontaneous
  Country: US (occurrence: US)
  Receive Date: 20150304
  Receipt Date: 20150304
  Transmission Date: 20150721
  Serious: No
  Sender: FDA-Public Use
  Company Number: US-EMD SERONO-8013895

PATIENT
  Sex: Male

DRUGS (1)
  1. REBIF [Suspect]
     Active Substance: INTERFERON BETA-1A
     Indication: PRODUCT USED FOR UNKNOWN INDICATION
     Route: 058
     Dates: start: 201410, end: 20150217

REACTIONS (5)
  - Hypokinesia [Unknown]
  - Central nervous system lesion [Unknown]
  - Influenza like illness [Unknown]
  - Arthralgia [Unknown]
  - Somnolence [Unknown]
